FAERS Safety Report 5202496-4 (Version None)
Quarter: 2006Q4

REPORT INFORMATION
  Report Type: 
  Country: None (occurrence: None)
  Receive Date: 20061018
  Receipt Date: 20060619
  Transmission Date: 20070319
  Serious: No
  Sender: FDA-Public Use
  Company Number: 2006076826

PATIENT
  Age: 63 Year

DRUGS (1)
  1. PEGAPTANIB SODIUM (PEGAPTANIB SODIUM) [Suspect]
     Indication: ILL-DEFINED DISORDER
     Dosage: INTRAVITREOUS

REACTIONS (1)
  - DRUG INEFFECTIVE [None]
